FAERS Safety Report 5802176-8 (Version None)
Quarter: 2008Q3

REPORT INFORMATION
  Report Type: 
  Country: None (occurrence: None)
  Receive Date: 20080702
  Receipt Date: 20080624
  Transmission Date: 20090109
  Serious: Yes (Death, Life-Threatening, Hospitalization, Other)
  Sender: FDA-Public Use
  Company Number: PAR_1224_2007

PATIENT
  Sex: Female

DRUGS (20)
  1. IBUPROFEN [Suspect]
     Indication: DRUG USE FOR UNKNOWN INDICATION
     Dosage: (DF)
  2. MOXIFLOXACIN I.V. VERSUS ERTAPENEM I.V. [Suspect]
     Indication: CHOLECYSTITIS
     Dosage: (DF INTRAVENOUS (NOT OTHERWIDE SPECIFIED)
     Route: 042
     Dates: start: 20070104, end: 20070106
  3. MOXIFLOXACIN I.V. VERSUS ERTAPENEM I.V. [Suspect]
     Indication: PERITONITIS
     Dosage: (DF INTRAVENOUS (NOT OTHERWIDE SPECIFIED)
     Route: 042
     Dates: start: 20070104, end: 20070106
  4. SODIUM [Concomitant]
  5. MORPHINE [Concomitant]
  6. RANITIDINE HCL [Concomitant]
  7. HEPARIN [Concomitant]
  8. DICLOFENAC [Concomitant]
  9. NITROGLYCERIN [Concomitant]
  10. ALBUTEROL [Concomitant]
  11. AMPICILLIN W/SULBACTAM [Concomitant]
  12. AMIODARONE HCL [Concomitant]
  13. OMEPRAZOLE [Concomitant]
  14. HYDROCORTISONE [Concomitant]
  15. FUROSEMIDE [Concomitant]
  16. SODIUM CHLORIDE 0.9% [Concomitant]
  17. POTASSIUM CHLORIDE [Concomitant]
  18. YECTAFER [Concomitant]
  19. VENTOLIN [Concomitant]
  20. DOPAMINE HCL [Concomitant]

REACTIONS (17)
  - ABDOMINAL INFECTION [None]
  - ATRIAL FLUTTER [None]
  - CARDIAC FAILURE ACUTE [None]
  - CATHETER SITE HAEMORRHAGE [None]
  - CHEST X-RAY ABNORMAL [None]
  - CHOLECYSTITIS [None]
  - DUODENAL ULCER PERFORATION [None]
  - GASTROINTESTINAL HAEMORRHAGE [None]
  - HYPOTENSION [None]
  - HYPOVOLAEMIC SHOCK [None]
  - INTESTINAL PERFORATION [None]
  - PERITONITIS [None]
  - PLATELET COUNT DECREASED [None]
  - PURULENT DISCHARGE [None]
  - RALES [None]
  - SEPSIS [None]
  - TACHYPNOEA [None]
